FAERS Safety Report 5082707-9 (Version None)
Quarter: 2006Q3

REPORT INFORMATION
  Report Type: 
  Country: None (occurrence: None)
  Receive Date: 20060816
  Receipt Date: 20060816
  Transmission Date: 20061208
  Serious: Yes (Hospitalization, Other)
  Sender: FDA-Public Use
  Company Number: None

PATIENT
  Age: 63 Year
  Sex: Male

DRUGS (19)
  1. LYMPHOCYTE IMMUNE GLOBULIN -EQUI 50 MG/ML PHARMACIA [Suspect]
     Indication: LUNG TRANSPLANT REJECTION
     Dosage: 1000 MG DAILY IV
     Route: 042
     Dates: start: 20051104, end: 20051114
  2. OYSTERSHELL CALCIUM + D [Concomitant]
  3. ALBUTEROL [Concomitant]
  4. SILDENAFIL CITRATE [Concomitant]
  5. MAGNESIUM OXIDE [Concomitant]
  6. MULTI-VITAMIN [Concomitant]
  7. HUMULIN 70/30 [Concomitant]
  8. VORICONAZOLE [Concomitant]
  9. PREDNISONE [Concomitant]
  10. TCROLIMUS [Concomitant]
  11. DOXYCYCLINE [Concomitant]
  12. METRONIDAZOLE [Concomitant]
  13. LEVOFLOXACIN [Concomitant]
  14. AZITHROMYCIN [Concomitant]
  15. VALGANCICLOVIR HCL [Concomitant]
  16. DILTIAZEM HCL [Concomitant]
  17. TERAZOSIN HCL [Concomitant]
  18. ASPIRIN [Concomitant]
  19. ESOMEPRAZOLE MAGNESIUM [Concomitant]

REACTIONS (4)
  - ATRIAL FIBRILLATION [None]
  - ATRIAL FLUTTER [None]
  - ELECTROLYTE IMBALANCE [None]
  - THROMBOCYTOPENIA [None]
